FAERS Safety Report 4777189-8 (Version None)
Quarter: 2005Q3

REPORT INFORMATION
  Report Type: 
  Country: None (occurrence: None)
  Receive Date: 20050923
  Receipt Date: 20050620
  Transmission Date: 20060218
  Serious: Yes (Disabling, Other)
  Sender: FDA-Public Use
  Company Number: US-MERCK-0506USA02945

PATIENT
  Age: 59 Year
  Sex: Male
  Weight: 95 kg

DRUGS (4)
  1. VIOXX [Suspect]
     Indication: ARTHRITIS
     Route: 048
     Dates: start: 20000301, end: 20041001
  2. VIOXX [Suspect]
     Indication: JOINT SWELLING
     Route: 048
     Dates: start: 20000301, end: 20041001
  3. XANAX [Concomitant]
     Route: 065
     Dates: start: 20020701
  4. TRANXENE [Concomitant]
     Route: 065
     Dates: start: 20020701

REACTIONS (2)
  - CEREBROVASCULAR ACCIDENT [None]
  - JOINT SWELLING [None]
